FAERS Safety Report 7778890-4 (Version None)
Quarter: 2011Q3

REPORT INFORMATION
  Report Type: 
  Country: None (occurrence: None)
  Receive Date: 20110926
  Receipt Date: 20110919
  Transmission Date: 20111222
  Serious: Yes (Death)
  Sender: FDA-Public Use
  Company Number: US-CELGENEUS-163-20785-11092446

PATIENT
  Sex: Female
  Weight: 95.794 kg

DRUGS (26)
  1. ASPIRIN [Concomitant]
     Dosage: 81 MILLIGRAM
     Route: 048
     Dates: start: 20080304
  2. ISOSORBIDE MONONITRATE [Concomitant]
     Dosage: .5
     Route: 048
  3. PROTONIX [Concomitant]
     Dosage: 40 MILLIGRAM
     Route: 048
  4. REVLIMID [Suspect]
     Indication: MULTIPLE MYELOMA
     Dosage: 10 MILLIGRAM
     Route: 048
     Dates: start: 20110801
  5. FERROUS SULFATE TAB [Concomitant]
     Route: 048
  6. MULTI-VITAMINS [Concomitant]
     Route: 048
  7. NIFEDIPINE [Concomitant]
     Dosage: 60 MILLIGRAM
     Route: 048
  8. MORPHINE SULFATE [Concomitant]
     Indication: PAIN
     Dosage: 60 MILLIGRAM
     Route: 048
  9. DEXAMETHASONE [Concomitant]
     Indication: MULTIPLE MYELOMA
     Dosage: 40 MILLIGRAM
     Route: 065
     Dates: start: 20080304, end: 20090201
  10. CLONIDINE HCL [Concomitant]
     Dosage: .4 MILLIGRAM
     Route: 048
  11. SPIRONOLACTONE [Concomitant]
     Dosage: 100 MILLIGRAM
     Route: 048
  12. THALOMID [Suspect]
     Indication: MULTIPLE MYELOMA
     Dosage: 100 MILLIGRAM
     Route: 048
     Dates: start: 20080311, end: 20080301
  13. THALOMID [Suspect]
     Dosage: 150 MILLIGRAM
     Route: 048
     Dates: start: 20080301
  14. LANTUS [Concomitant]
     Dosage: 40 IU (INTERNATIONAL UNIT)
     Route: 058
  15. LASIX [Concomitant]
     Dosage: 40 MILLIGRAM
     Route: 048
  16. MORPHINE SULFATE [Concomitant]
     Dosage: 30 MILLIGRAM
     Route: 048
  17. NEURONTIN [Concomitant]
     Dosage: 1600 MILLIGRAM
     Route: 048
  18. HUMALOG [Concomitant]
     Dosage: 4 IU (INTERNATIONAL UNIT)
     Route: 058
  19. HYDRALAZINE HCL [Concomitant]
     Dosage: 100 MILLIGRAM
     Route: 048
  20. DEXAMETHASONE [Concomitant]
     Route: 065
     Dates: start: 20110622
  21. LANOXIN [Concomitant]
     Dosage: 250 MICROGRAM
     Route: 048
  22. THALOMID [Suspect]
     Dosage: 200 MILLIGRAM
     Route: 048
     Dates: start: 20080101, end: 20090201
  23. LISINOPRIL [Concomitant]
     Dosage: 2.5 MILLIGRAM
     Route: 048
  24. VITAMIN D [Concomitant]
     Route: 048
  25. LORAZEPAM [Concomitant]
     Dosage: 2 MILLIGRAM
     Route: 048
  26. ZANAFLEX [Concomitant]
     Dosage: 4 MILLIGRAM
     Route: 048

REACTIONS (2)
  - BREAST CANCER [None]
  - MULTIPLE MYELOMA [None]
